FAERS Safety Report 8401268-7 (Version None)
Quarter: 2012Q2

REPORT INFORMATION
  Report Type: 
  Country: None (occurrence: None)
  Receive Date: 20120530
  Receipt Date: 20120530
  Transmission Date: 20120825
  Serious: Yes (Other)
  Sender: FDA-Public Use
  Company Number: None

PATIENT
  Sex: Male
  Weight: 99.7913 kg

DRUGS (3)
  1. PAROXETINE [Suspect]
     Indication: DEPRESSION
     Dosage: 20 MG 2 DAILY ORAL
     Route: 048
     Dates: start: 20120420, end: 20120509
  2. LANTUS [Concomitant]
  3. HUMALOG [Concomitant]

REACTIONS (8)
  - SOCIAL AVOIDANT BEHAVIOUR [None]
  - ANGER [None]
  - IRRITABILITY [None]
  - DEPRESSION [None]
  - PRODUCT SUBSTITUTION ISSUE [None]
  - HOSTILITY [None]
  - PRODUCT QUALITY ISSUE [None]
  - PERSONALITY CHANGE [None]
